FAERS Safety Report 18693284 (Version 1)
Quarter: 2021Q1

REPORT INFORMATION
  Report Type: Spontaneous
  Country: US (occurrence: US)
  Receive Date: 20210104
  Receipt Date: 20210104
  Transmission Date: 20210419
  Serious: No
  Sender: FDA-Public Use
  Company Number: US-CELGENEUS-USA-20201208543

PATIENT
  Sex: Male

DRUGS (2)
  1. THALOMID [Suspect]
     Active Substance: THALIDOMIDE
     Indication: OFF LABEL USE
     Dosage: 100 MILLIGRAM
     Route: 048
     Dates: start: 202012
  2. THALOMID [Suspect]
     Active Substance: THALIDOMIDE
     Indication: HIV INFECTION
     Dosage: 50 MILLIGRAM
     Route: 048
     Dates: start: 202011

REACTIONS (2)
  - Liver disorder [Unknown]
  - Headache [Unknown]
